FAERS Safety Report 7374449-1 (Version None)
Quarter: 2011Q1

REPORT INFORMATION
  Report Type: 
  Country: None (occurrence: None)
  Receive Date: 20110325
  Receipt Date: 20110314
  Transmission Date: 20110831
  Serious: Yes (Hospitalization)
  Sender: FDA-Public Use
  Company Number: US-ENDO PHARMACEUTICALS INC.-OPER20110002

PATIENT
  Sex: Male

DRUGS (4)
  1. XODOL [Suspect]
     Indication: BACK PAIN
     Dosage: UNKNOWN
     Route: 065
     Dates: end: 20101201
  2. XODOL [Suspect]
     Dosage: UNKNOWN
     Route: 065
  3. OPANA ER [Suspect]
     Indication: BACK PAIN
     Route: 048
     Dates: start: 20101201, end: 20101201
  4. OPANA ER [Suspect]
     Route: 048
     Dates: start: 20110102, end: 20110101

REACTIONS (5)
  - HYPOAESTHESIA [None]
  - BLINDNESS TRANSIENT [None]
  - RENAL FAILURE [None]
  - POLLAKIURIA [None]
  - DEHYDRATION [None]
